FAERS Safety Report 15152316 (Version 4)
Quarter: 2018Q4

REPORT INFORMATION
  Report Type: Spontaneous
  Country: DE (occurrence: DE)
  Receive Date: 20180717
  Receipt Date: 20181121
  Transmission Date: 20190204
  Serious: Yes (Other)
  Sender: FDA-Public Use
  Company Number: DE-VELOXIS PHARMACEUTICALS, INC.-2018VELDE1036

PATIENT
  Age: 30 Year
  Sex: Female

DRUGS (6)
  1. EISENCARBOXYMALTOSE [Interacting]
     Active Substance: IRON POLYMALTOSE
     Indication: MENORRHAGIA
     Dosage: UNK
     Route: 041
  2. MYFORTIC [Concomitant]
     Active Substance: MYCOPHENOLATE SODIUM
     Indication: PRODUCT USED FOR UNKNOWN INDICATION
     Dosage: 360 MG, UNK
  3. ADVAGRAF [Concomitant]
     Active Substance: TACROLIMUS
     Indication: PRODUCT USED FOR UNKNOWN INDICATION
  4. PREDNISOLON                        /00016201/ [Concomitant]
     Active Substance: PREDNISOLONE
     Indication: PRODUCT USED FOR UNKNOWN INDICATION
     Dosage: 5 MG, UNK
  5. AZATHIOPRIN [Concomitant]
     Active Substance: AZATHIOPRINE
     Indication: PRODUCT USED FOR UNKNOWN INDICATION
     Dosage: UNK MG, UNK
  6. ENVARSUS XR [Suspect]
     Active Substance: TACROLIMUS
     Indication: RENAL TRANSPLANT
     Dosage: UNK
     Route: 048

REACTIONS (4)
  - Transplant rejection [Unknown]
  - Tubulointerstitial nephritis [Unknown]
  - Drug effect decreased [Unknown]
  - Drug interaction [Unknown]

NARRATIVE: CASE EVENT DATE: 201805
